FAERS Safety Report 23231378 (Version 1)
Quarter: 2023Q4

REPORT INFORMATION
  Report Type: Spontaneous
  Country: US (occurrence: US)
  Receive Date: 20231127
  Receipt Date: 20231127
  Transmission Date: 20240110
  Serious: No
  Sender: FDA-Public Use
  Company Number: US-AVADEL CNS PHARMACEUTICALS, LLC-2023AVA00332

PATIENT
  Age: 50 Year
  Sex: Female
  Weight: 107.48 kg

DRUGS (4)
  1. LUMRYZ [Suspect]
     Active Substance: SODIUM OXYBATE
     Indication: Narcolepsy
     Dosage: 6 G, 1X/DAY
     Route: 048
     Dates: start: 20231016, end: 20231016
  2. LUMRYZ [Suspect]
     Active Substance: SODIUM OXYBATE
     Dosage: 6 G, 2X/DAY
     Route: 048
     Dates: start: 20231017, end: 20231017
  3. LUMRYZ [Suspect]
     Active Substance: SODIUM OXYBATE
     Dosage: 6 G
     Route: 048
     Dates: start: 202310
  4. UNSPECIFIED INGREDIENT [Concomitant]
     Active Substance: UNSPECIFIED INGREDIENT

REACTIONS (9)
  - Euphoric mood [Recovered/Resolved]
  - Tachyphrenia [Recovered/Resolved]
  - Initial insomnia [Unknown]
  - Insomnia [Unknown]
  - Extra dose administered [Recovered/Resolved]
  - Gait disturbance [Recovered/Resolved]
  - Feeling abnormal [Recovered/Resolved]
  - Disorientation [Recovered/Resolved]
  - Intentional dose omission [Unknown]

NARRATIVE: CASE EVENT DATE: 20231001
